FAERS Safety Report 9963591 (Version 1)
Quarter: 2014Q1

REPORT INFORMATION
  Report Type: Report from Study
  Country: US (occurrence: US)
  Receive Date: 20140305
  Receipt Date: 20140305
  Transmission Date: 20141002
  Serious: No
  Sender: FDA-Public Use
  Company Number: US-ABBVIE-13P-163-1118545-00

PATIENT
  Sex: Female

DRUGS (12)
  1. HUMIRA [Suspect]
     Indication: COLITIS ULCERATIVE
     Dates: start: 20130507, end: 20130507
  2. HUMIRA [Suspect]
     Indication: ARTHRITIS
     Dates: start: 20130521, end: 20130521
  3. HUMIRA [Suspect]
     Dates: start: 20130605, end: 20130605
  4. ADVAIR [Concomitant]
     Indication: ASTHMA
     Dosage: 100/20
  5. FELODIPINE ER [Concomitant]
     Indication: HYPERTENSION
  6. ENALAPRIL [Concomitant]
     Indication: HYPERTENSION
     Dosage: 20 MG DAILY
  7. PREMARIN [Concomitant]
     Indication: HYSTERECTOMY
  8. ASACOL [Concomitant]
     Indication: COLITIS ULCERATIVE
     Dosage: 400 MG DAILY
  9. PAROXETINE [Concomitant]
     Indication: NERVOUSNESS
     Dosage: 10 MG DAILY
  10. LEVOTHYROXINE [Concomitant]
     Indication: THYROIDECTOMY
  11. TRAMADOL [Concomitant]
     Indication: ARTHRALGIA
  12. GABAPENTIN [Concomitant]
     Indication: PAIN
     Dosage: 1 OR 2 PILLS EVERY NIGHT

REACTIONS (1)
  - Cystitis [Recovered/Resolved]
